FAERS Safety Report 5794296-1 (Version None)
Quarter: 2008Q2

REPORT INFORMATION
  Report Type: 
  Country: None (occurrence: None)
  Receive Date: 20080625
  Receipt Date: 20080616
  Transmission Date: 20081010
  Serious: Yes (Death)
  Sender: FDA-Public Use
  Company Number: CLOF-1000203

PATIENT
  Age: 11 Year
  Sex: Male

DRUGS (13)
  1. CLOFARABINE (CLOFARABINE) CAPSULE [Suspect]
     Indication: ACUTE MYELOID LEUKAEMIA
     Dosage: 20 MG/M2, QD, ORAL
     Route: 048
     Dates: start: 20080524, end: 20080605
  2. CALCIUM CARBONATE (CALCIUM CARBONATE) [Concomitant]
  3. CARVEDIOL (CARVEDILOL) [Concomitant]
  4. ENALAPRIL MALEATE AND HYDROCHLOROTHIAZIDE [Concomitant]
  5. K-PHOS (POTASSIUM PHOSPHATE MONOBASIC) TABLET [Concomitant]
  6. MAGNESIUM (MAGNESIUM) TABLET [Concomitant]
  7. NEURONTIN [Concomitant]
  8. LANSOPRAZOLE [Concomitant]
  9. NEUTRA-PHOS (POTASSIUM PHOSPHATE DIBASIC, POTASSIUM PHOSPHATE MONOBASI [Concomitant]
  10. PERIOGARD (CHLORHEXIDINE GLUCONATE, ETHANOL) [Concomitant]
  11. VALTREX [Concomitant]
  12. VORICONAZOLE (VORICONAZOLE) [Concomitant]
  13. MEROPENEM (MEROPENEM) [Concomitant]

REACTIONS (6)
  - CARDIO-RESPIRATORY ARREST [None]
  - HEPATOSPLENOMEGALY [None]
  - MALIGNANT NEOPLASM PROGRESSION [None]
  - MULTI-ORGAN FAILURE [None]
  - STAPHYLOCOCCAL INFECTION [None]
  - TACHYCARDIA [None]
